FAERS Safety Report 26013643 (Version 1)
Quarter: 2025Q4

REPORT INFORMATION
  Report Type: Spontaneous
  Country: EU (occurrence: EU)
  Receive Date: 20251107
  Receipt Date: 20251107
  Transmission Date: 20260118
  Serious: Yes (Hospitalization)
  Sender: PFIZER
  Company Number: None

PATIENT
  Age: 64 Year
  Sex: Male
  Weight: 60 kg

DRUGS (3)
  1. VINCRISTINE SULFATE [Suspect]
     Active Substance: VINCRISTINE SULFATE
     Indication: High grade B-cell lymphoma Burkitt-like lymphoma
     Dosage: 1.9 MG
     Route: 042
     Dates: start: 20251002, end: 20251002
  2. CYCLOPHOSPHAMIDE [Suspect]
     Active Substance: CYCLOPHOSPHAMIDE
     Indication: High grade B-cell lymphoma Burkitt-like lymphoma
     Dosage: 260 MG
     Route: 042
     Dates: start: 20251002, end: 20251002
  3. PREDNISONE [Suspect]
     Active Substance: PREDNISONE
     Indication: High grade B-cell lymphoma Burkitt-like lymphoma
     Dosage: 112.5 MG
     Route: 048
     Dates: start: 20251002, end: 20251007

REACTIONS (2)
  - Tumour lysis syndrome [Recovered/Resolved]
  - Ventricular dysfunction [Not Recovered/Not Resolved]

NARRATIVE: CASE EVENT DATE: 20251003
